FAERS Safety Report 8017415-5 (Version None)
Quarter: 2012Q1

REPORT INFORMATION
  Report Type: 
  Country: None (occurrence: None)
  Receive Date: 20120102
  Receipt Date: 20111017
  Transmission Date: 20120608
  Serious: Yes (Other)
  Sender: FDA-Public Use
  Company Number: PHHY2011US108563

PATIENT
  Age: 72 Year
  Sex: Female

DRUGS (4)
  1. PAMIDRONATE DISODIUM [Suspect]
     Indication: MULTIPLE MYELOMA
     Dosage: 90 MG, UNK
     Route: 042
     Dates: start: 20040701, end: 20060301
  2. GLUCOCORTICOSTEROIDS [Concomitant]
  3. ZOLEDRONIC ACID [Suspect]
     Indication: MULTIPLE MYELOMA
     Dosage: 4 MG, QMO
     Route: 042
     Dates: start: 20060301
  4. BORTEZOMIB [Concomitant]

REACTIONS (3)
  - FOOT FRACTURE [None]
  - NEUROPATHY PERIPHERAL [None]
  - BONE PAIN [None]
